FAERS Safety Report 14643006 (Version 1)
Quarter: 2018Q1

REPORT INFORMATION
  Report Type: Spontaneous
  Country: ZA (occurrence: ZA)
  Receive Date: 20180315
  Receipt Date: 20180315
  Transmission Date: 20180509
  Serious: Yes (Death)
  Sender: FDA-Public Use
  Company Number: ZA-MYLANLABS-2018M1015785

PATIENT
  Age: 46 Year
  Sex: Male

DRUGS (2)
  1. MYLAN ALPRAZOLAM 0.5 MG [Suspect]
     Active Substance: ALPRAZOLAM
     Indication: STRESS
     Dosage: 0.5 MG, UNK
     Route: 048
     Dates: start: 201802
  2. ALCHERA [Suspect]
     Active Substance: ZOPICLONE
     Indication: INSOMNIA
     Dosage: 7.5 MG, UNK
     Route: 048
     Dates: start: 201802

REACTIONS (1)
  - Death [Fatal]
